FAERS Safety Report 8287076-9 (Version None)
Quarter: 2012Q2

REPORT INFORMATION
  Report Type: 
  Country: None (occurrence: None)
  Receive Date: 20120416
  Receipt Date: 20111019
  Transmission Date: 20120825
  Serious: No
  Sender: FDA-Public Use
  Company Number: US-ALLERGAN-1113836US

PATIENT
  Sex: Female

DRUGS (1)
  1. ZYMAXID [Suspect]
     Indication: INFLAMMATION
     Dosage: ONLY USED TWICE
     Route: 047
     Dates: start: 20110922, end: 20110923

REACTIONS (4)
  - EYELID IRRITATION [None]
  - ADVERSE DRUG REACTION [None]
  - EYE INFLAMMATION [None]
  - INFLAMMATION [None]
